FAERS Safety Report 6807183-4 (Version None)
Quarter: 2010Q2

REPORT INFORMATION
  Report Type: 
  Country: None (occurrence: None)
  Receive Date: 20100629
  Receipt Date: 20080822
  Transmission Date: 20101027
  Serious: No
  Sender: FDA-Public Use
  Company Number: US-PFIZER INC-2008069748

PATIENT
  Sex: Male
  Weight: 90.9 kg

DRUGS (5)
  1. VIAGRA [Suspect]
     Indication: ERECTILE DYSFUNCTION
     Dosage: PRN
     Route: 048
     Dates: start: 20080101
  2. GALENIC /BENAZEPRIL/HYDROCHLOROTHIAZIDE/ [Concomitant]
  3. PRAVASTATIN [Concomitant]
  4. CARVEDILOL [Concomitant]
  5. ACETYLSALICYLIC ACID [Concomitant]

REACTIONS (2)
  - DRUG EFFECT DECREASED [None]
  - WRONG TECHNIQUE IN DRUG USAGE PROCESS [None]
